FAERS Safety Report 25317380 (Version 3)
Quarter: 2025Q3

REPORT INFORMATION
  Report Type: Report from Study
  Country: CA (occurrence: CA)
  Receive Date: 20250515
  Receipt Date: 20250724
  Transmission Date: 20251020
  Serious: Yes (Hospitalization)
  Sender: ABBVIE
  Company Number: CA-ABBVIE-6153159

PATIENT
  Age: 25 Year
  Sex: Female

DRUGS (1)
  1. RINVOQ [Suspect]
     Active Substance: UPADACITINIB
     Indication: Dermatitis atopic
     Dosage: STRENGTH: 30 MG
     Route: 048

REACTIONS (10)
  - Rib fracture [Not Recovered/Not Resolved]
  - COVID-19 [Unknown]
  - Mental disorder [Unknown]
  - Ocular icterus [Unknown]
  - Nasal septum perforation [Unknown]
  - Nasal septum disorder [Unknown]
  - Upper-airway cough syndrome [Unknown]
  - Excessive cerumen production [Unknown]
  - Painful respiration [Unknown]
  - Blood immunoglobulin E increased [Unknown]

NARRATIVE: CASE EVENT DATE: 20240501
